FAERS Safety Report 8272229-6 (Version None)
Quarter: 2012Q2

REPORT INFORMATION
  Report Type: 
  Country: None (occurrence: None)
  Receive Date: 20120410
  Receipt Date: 20120403
  Transmission Date: 20120825
  Serious: Yes (Other)
  Sender: FDA-Public Use
  Company Number: US-US-EMD SERONO, INC.-7043513

PATIENT
  Sex: Female

DRUGS (2)
  1. REBIF [Suspect]
     Indication: MULTIPLE SCLEROSIS
  2. REBIF [Suspect]
     Route: 058
     Dates: start: 20110209, end: 20120301

REACTIONS (4)
  - NAUSEA [None]
  - DECREASED APPETITE [None]
  - HAEMOLYTIC ANAEMIA [None]
  - ABDOMINAL PAIN UPPER [None]
